FAERS Safety Report 23137302 (Version 1)
Quarter: 2023Q4

REPORT INFORMATION
  Report Type: Report from Study
  Country: MX (occurrence: MX)
  Receive Date: 20231102
  Receipt Date: 20231102
  Transmission Date: 20240110
  Serious: Yes (Disabling)
  Sender: FDA-Public Use
  Company Number: MX-002147023-NVSC2023MX232669

PATIENT
  Sex: Male

DRUGS (2)
  1. GILENYA [Suspect]
     Active Substance: FINGOLIMOD HYDROCHLORIDE
     Indication: Multiple sclerosis
     Dosage: 0.5 MG, QD
     Route: 048
     Dates: start: 20220103
  2. DIMETHYL FUMARATE [Concomitant]
     Active Substance: DIMETHYL FUMARATE
     Indication: Product used for unknown indication
     Dosage: UNK
     Route: 042

REACTIONS (6)
  - Fall [Not Recovered/Not Resolved]
  - Chest discomfort [Unknown]
  - Mood swings [Not Recovered/Not Resolved]
  - Appetite disorder [Not Recovered/Not Resolved]
  - Coordination abnormal [Unknown]
  - Dyspnoea [Not Recovered/Not Resolved]
